FAERS Safety Report 6229825-7 (Version None)
Quarter: 2009Q2

REPORT INFORMATION
  Report Type: 
  Country: None (occurrence: None)
  Receive Date: 20090615
  Receipt Date: 20090601
  Transmission Date: 20091009
  Serious: Yes (Life-Threatening, Hospitalization)
  Sender: FDA-Public Use
  Company Number: JP-MYLANLABS-2009S1009534

PATIENT
  Age: 74 Year
  Sex: Male

DRUGS (6)
  1. CARBOPLATIN [Suspect]
     Indication: LUNG NEOPLASM MALIGNANT
     Dosage: AUC5 = 500MG DAY 1
  2. PACLITAXEL [Suspect]
     Indication: LUNG NEOPLASM MALIGNANT
     Dosage: (110MG) ON DAYS 1, 8 AND 15
  3. DEXAMETHASONE [Concomitant]
     Route: 041
  4. FAMOTIDINE [Concomitant]
     Route: 041
  5. GRANISETRON HCL [Concomitant]
     Route: 041
  6. CHLORPHENIRAMINE MALEATE [Concomitant]
     Route: 041

REACTIONS (1)
  - RECTAL PERFORATION [None]
